FAERS Safety Report 25464173 (Version 1)
Quarter: 2025Q2

REPORT INFORMATION
  Report Type: Spontaneous
  Country: PL (occurrence: PL)
  Receive Date: 20250621
  Receipt Date: 20250621
  Transmission Date: 20250716
  Serious: Yes (Hospitalization)
  Sender: ACCORD
  Company Number: PL-MLMSERVICE-20250602-PI528792-00057-1

PATIENT
  Age: 68 Year
  Sex: Female

DRUGS (5)
  1. ATORVASTATIN [Suspect]
     Active Substance: ATORVASTATIN
     Indication: Product used for unknown indication
  2. CARVEDILOL [Concomitant]
     Active Substance: CARVEDILOL
  3. RAMIPRIL [Concomitant]
     Active Substance: RAMIPRIL
  4. INDAPAMIDE [Concomitant]
     Active Substance: INDAPAMIDE
  5. ASPIRIN [Concomitant]
     Active Substance: ASPIRIN

REACTIONS (1)
  - Interstitial granulomatous dermatitis [Recovered/Resolved]
